FAERS Safety Report 12436815 (Version 1)
Quarter: 2016Q2

REPORT INFORMATION
  Report Type: Spontaneous
  Country: US (occurrence: None)
  Receive Date: 20160603
  Receipt Date: 20160603
  Transmission Date: 20160815
  Serious: Yes (Disabling)
  Sender: FDA-Public Use
  Company Number: None

PATIENT
  Age: 29 Year
  Sex: Female
  Weight: 58.06 kg

DRUGS (2)
  1. HYDROCORTISONE. [Concomitant]
     Active Substance: HYDROCORTISONE
  2. KIDS SUNSCREEN LOTION BROAD SPEC, 10.4 FLUID OUNCES TARGET CORPORATION [Suspect]
     Active Substance: HOMOSALATE\OCTINOXATE\OCTISALATE\TITANIUM DIOXIDE
     Indication: PROPHYLAXIS AGAINST SOLAR RADIATION
     Dosage: 2 SUNSCREEN APPLICAT 2 TO 3 TIMES, APPLIED TO A SURFACE, USUALLY THE SKIN
     Dates: start: 20160318, end: 20160530

REACTIONS (4)
  - Application site rash [None]
  - Frustration tolerance decreased [None]
  - Product quality issue [None]
  - Application site pruritus [None]

NARRATIVE: CASE EVENT DATE: 20160530
